FAERS Safety Report 6872890-4 (Version None)
Quarter: 2010Q3

REPORT INFORMATION
  Report Type: 
  Country: None (occurrence: None)
  Receive Date: 20100723
  Receipt Date: 20081103
  Transmission Date: 20110219
  Serious: No
  Sender: FDA-Public Use
  Company Number: US-PFIZER INC-2008098169

PATIENT
  Sex: Male
  Weight: 108.86 kg

DRUGS (1)
  1. CHANTIX [Suspect]
     Indication: SMOKING CESSATION THERAPY
     Dates: start: 20081007

REACTIONS (5)
  - CHEST DISCOMFORT [None]
  - COUGH [None]
  - PARAESTHESIA [None]
  - PARAESTHESIA ORAL [None]
  - RESPIRATORY DISORDER [None]
